FAERS Safety Report 15806850 (Version 1)
Quarter: 2019Q1

REPORT INFORMATION
  Report Type: Spontaneous
  Country: US (occurrence: US)
  Receive Date: 20190107
  Receipt Date: 20190107
  Transmission Date: 20190417
  Serious: No
  Sender: FDA-Public Use
  Company Number: None

PATIENT

DRUGS (2)
  1. NORMOSOL-R [Suspect]
     Active Substance: MAGNESIUM CHLORIDE\POTASSIUM CHLORIDE\SODIUM ACETATE ANHYDROUS\SODIUM CHLORIDE\SODIUM GLUCONATE
     Dosage: ADM ROUTE: INJECTION?TYPE: IV BAG
  2. NORMOSOL-R [Suspect]
     Active Substance: MAGNESIUM CHLORIDE\POTASSIUM CHLORIDE\SODIUM ACETATE ANHYDROUS\SODIUM CHLORIDE\SODIUM GLUCONATE
     Dosage: ADM ROUTE: INJECTION?TYPE: IV BAG

REACTIONS (4)
  - Wrong product administered [None]
  - Product name confusion [None]
  - Product appearance confusion [None]
  - Product dispensing error [None]
